FAERS Safety Report 4277657-1 (Version None)
Quarter: 2004Q1

REPORT INFORMATION
  Report Type: 
  Country: None (occurrence: None)
  Receive Date: 20040121
  Receipt Date: 20040114
  Transmission Date: 20041129
  Serious: Yes (Other)
  Sender: FDA-Public Use
  Company Number: US-JNJFOC-20031006734

PATIENT
  Age: 67 Year
  Sex: Female

DRUGS (4)
  1. DURAGESIC [Suspect]
     Indication: PAIN
     Dosage: 25 UG/HR, 1 IN 72 HOUR, TRANSDERMAL
     Route: 062
     Dates: start: 20031019, end: 20031029
  2. ACCUPRIL [Concomitant]
  3. LIPITOR [Concomitant]
  4. XANAX [Concomitant]

REACTIONS (2)
  - BLOOD PRESSURE INCREASED [None]
  - PARAESTHESIA [None]
